FAERS Safety Report 7437749-2 (Version None)
Quarter: 2011Q2

REPORT INFORMATION
  Report Type: 
  Country: None (occurrence: None)
  Receive Date: 20110426
  Receipt Date: 20110419
  Transmission Date: 20111010
  Serious: Yes (Hospitalization, Other)
  Sender: FDA-Public Use
  Company Number: FR-PFIZER INC-2011085181

PATIENT
  Age: 61 Year
  Sex: Female

DRUGS (2)
  1. PRODILANTIN [Suspect]
     Indication: STATUS EPILEPTICUS
     Dosage: 1500 MG, SINGLE
     Dates: start: 20110115, end: 20110115
  2. PRODILANTIN [Suspect]
     Dosage: 200 MG, 2X/DAY
     Route: 042
     Dates: start: 20110115, end: 20110117

REACTIONS (5)
  - TOXIC SKIN ERUPTION [None]
  - HEPATOMEGALY [None]
  - CHOLESTASIS [None]
  - EOSINOPHILIA [None]
  - FACE OEDEMA [None]
